FAERS Safety Report 17103385 (Version 2)
Quarter: 2021Q1

REPORT INFORMATION
  Report Type: Report from Study
  Country: US (occurrence: US)
  Receive Date: 20191203
  Receipt Date: 20210204
  Transmission Date: 20210419
  Serious: No
  Sender: FDA-Public Use
  Company Number: NVSC2019US028471

PATIENT
  Age: 86 Year
  Sex: Female

DRUGS (1)
  1. ENTRESTO [Suspect]
     Active Substance: SACUBITRIL\VALSARTAN
     Indication: CARDIAC FAILURE
     Dosage: 0.5 DF, BID (50 MG (24.26 MG))
     Route: 048
     Dates: start: 2018

REACTIONS (4)
  - Arthritis [Not Recovered/Not Resolved]
  - Wrong technique in product usage process [Recovering/Resolving]
  - Incorrect dose administered [Unknown]
  - Weight increased [Unknown]

NARRATIVE: CASE EVENT DATE: 201909
